FAERS Safety Report 6737019-1 (Version None)
Quarter: 2010Q2

REPORT INFORMATION
  Report Type: 
  Country: None (occurrence: None)
  Receive Date: 20100523
  Receipt Date: 20091125
  Transmission Date: 20101027
  Serious: No
  Sender: FDA-Public Use
  Company Number: US-ALLERGAN-0916494US

PATIENT
  Sex: Male

DRUGS (2)
  1. ZYMAR [Suspect]
     Indication: POSTOPERATIVE CARE
     Route: 047
  2. ACULAR LS [Concomitant]
     Indication: POSTOPERATIVE CARE
     Route: 047

REACTIONS (1)
  - FOREIGN BODY [None]
